FAERS Safety Report 15727920 (Version 1)
Quarter: 2018Q4

REPORT INFORMATION
  Report Type: Spontaneous
  Country: GB (occurrence: GB)
  Receive Date: 20181217
  Receipt Date: 20181217
  Transmission Date: 20190205
  Serious: Yes (Other)
  Sender: FDA-Public Use
  Company Number: GB-ROCHE-2229040

PATIENT
  Age: 84 Year
  Sex: Female

DRUGS (2)
  1. RITUXIMAB. [Suspect]
     Active Substance: RITUXIMAB
     Indication: CHEMOTHERAPY
     Route: 065
     Dates: start: 20180820
  2. RITUXIMAB. [Suspect]
     Active Substance: RITUXIMAB
     Route: 065
     Dates: start: 201801

REACTIONS (5)
  - Blood pressure increased [Unknown]
  - Heart rate increased [Unknown]
  - Dyspnoea [Unknown]
  - Incorrect drug administration rate [Unknown]
  - Product preparation error [Unknown]

NARRATIVE: CASE EVENT DATE: 20180820
